FAERS Safety Report 21261124 (Version 2)
Quarter: 2022Q3

REPORT INFORMATION
  Report Type: Spontaneous
  Country: US (occurrence: US)
  Receive Date: 20220826
  Receipt Date: 20220831
  Transmission Date: 20221027
  Serious: No
  Sender: FDA-Public Use
  Company Number: US-009507513-2208USA007363

PATIENT
  Sex: Female

DRUGS (3)
  1. KEYTRUDA [Suspect]
     Active Substance: PEMBROLIZUMAB
     Indication: Non-small cell lung cancer
     Dosage: UNKNOWN BY REPORTER/ EVERY 3 WEEKS
     Route: 042
     Dates: start: 2018
  2. PEMETREXED [Suspect]
     Active Substance: PEMETREXED
     Indication: Non-small cell lung cancer
     Dosage: UNK
     Dates: start: 2018
  3. CARBOPLATIN [Suspect]
     Active Substance: CARBOPLATIN
     Indication: Non-small cell lung cancer
     Dosage: UNK
     Dates: start: 2018

REACTIONS (9)
  - Drug intolerance [Unknown]
  - Adverse drug reaction [Unknown]
  - Weight increased [Unknown]
  - Neoplasm recurrence [Unknown]
  - Lymphadenopathy [Unknown]
  - Tumour marker increased [Unknown]
  - Alopecia areata [Unknown]
  - Arthritis [Unknown]
  - Product use issue [Unknown]

NARRATIVE: CASE EVENT DATE: 20210101
